FAERS Safety Report 8726134 (Version 2)
Quarter: 2012Q4

REPORT INFORMATION
  Report Type: Spontaneous
  Country: US (occurrence: None)
  Receive Date: 20120730
  Receipt Date: 20120907
  Transmission Date: 20130627
  Serious: Yes (Other)
  Sender: FDA-Public Use
  Company Number: 2012SA052140

PATIENT
  Age: 49 Year
  Sex: Male
  Weight: 86.81 kg

DRUGS (1)
  1. CAPSAICIN [Suspect]
     Indication: PAIN RELIEF
     Route: 061
     Dates: start: 20120715, end: 20120715

REACTIONS (4)
  - Application site erythema [None]
  - Application site vesicles [None]
  - Burns second degree [None]
  - Drug eruption [None]
